FAERS Safety Report 5236601-0 (Version None)
Quarter: 2007Q1

REPORT INFORMATION
  Report Type: 
  Country: None (occurrence: None)
  Receive Date: 20070208
  Receipt Date: 20070124
  Transmission Date: 20070707
  Serious: Yes (Other)
  Sender: FDA-Public Use
  Company Number: 2007AD000005

PATIENT
  Age: 18 Year
  Sex: Female

DRUGS (1)
  1. KEFLEX [Suspect]
     Indication: SKIN BACTERIAL INFECTION
     Dosage: 500 MG; BID; PO
     Route: 048

REACTIONS (1)
  - SYNCOPE [None]
